FAERS Safety Report 9304558 (Version 3)
Quarter: 2013Q3

REPORT INFORMATION
  Report Type: Spontaneous
  Country: IT (occurrence: IT)
  Receive Date: 20130523
  Receipt Date: 20130708
  Transmission Date: 20140515
  Serious: Yes (Hospitalization)
  Sender: FDA-Public Use
  Company Number: IT-009507513-1305ITA011811

PATIENT
  Age: 76 Year
  Sex: Female
  Weight: 66 kg

DRUGS (6)
  1. PEGINTRON [Suspect]
     Indication: HEPATITIS C VIRUS TEST POSITIVE
     Dosage: 100 MICROGRAM, QW
     Route: 058
     Dates: start: 20130322
  2. COPEGUS [Suspect]
     Indication: HEPATITIS C VIRUS TEST POSITIVE
     Dosage: 1 G, QD
     Route: 048
     Dates: start: 20130322, end: 201304
  3. COPEGUS [Suspect]
     Dosage: 600 MG, QD
     Route: 048
     Dates: start: 201304
  4. TELAPREVIR [Suspect]
     Indication: HEPATITIS C VIRUS TEST POSITIVE
     Dosage: 2250 MG, QD
     Route: 048
     Dates: start: 20130322, end: 20130418
  5. KARVEZIDE [Concomitant]
     Indication: HYPERTENSION
     Dosage: 150 MG/12.5 MG
     Route: 048
  6. EUTIROX [Concomitant]
     Indication: HYPOTHYROIDISM
     Dosage: 1000 MICROGRAM, UNK
     Route: 048

REACTIONS (3)
  - Anaemia [Recovering/Resolving]
  - Asthenia [Recovering/Resolving]
  - Psychomotor skills impaired [Recovering/Resolving]
